FAERS Safety Report 23334147 (Version 1)
Quarter: 2023Q4

REPORT INFORMATION
  Report Type: Spontaneous
  Country: US (occurrence: US)
  Receive Date: 20231223
  Receipt Date: 20231223
  Transmission Date: 20240109
  Serious: Yes (Other)
  Sender: FDA-Public Use
  Company Number: US-ABBVIE-5552380

PATIENT
  Sex: Female
  Weight: 41 kg

DRUGS (12)
  1. DUOPA [Suspect]
     Active Substance: CARBIDOPA\LEVODOPA
     Indication: Parkinson^s disease
     Route: 050
     Dates: start: 2018
  2. DUOPA [Suspect]
     Active Substance: CARBIDOPA\LEVODOPA
  3. SINEMET [Concomitant]
     Active Substance: CARBIDOPA\LEVODOPA
     Indication: Product used for unknown indication
  4. NUPLAZID [Concomitant]
     Active Substance: PIMAVANSERIN TARTRATE
     Indication: Hallucination
  5. PROLIA [Concomitant]
     Active Substance: DENOSUMAB
     Indication: Osteoporosis
  6. DONEPEZIL [Concomitant]
     Active Substance: DONEPEZIL
     Indication: Amnesia
  7. CITALOPRAM [Concomitant]
     Active Substance: CITALOPRAM HYDROBROMIDE
     Indication: Depression
  8. SEROQUEL [Concomitant]
     Active Substance: QUETIAPINE FUMARATE
     Indication: Product used for unknown indication
  9. MEMANTINE [Concomitant]
     Active Substance: MEMANTINE
     Indication: Dementia
  10. VITAMIN D [Concomitant]
     Active Substance: VITAMIN D NOS
     Indication: Product used for unknown indication
  11. RASAGILINE [Concomitant]
     Active Substance: RASAGILINE
     Indication: Product used for unknown indication
  12. TRAZODONE [Concomitant]
     Active Substance: TRAZODONE HYDROCHLORIDE
     Indication: Agitation

REACTIONS (4)
  - Memory impairment [Recovered/Resolved]
  - Device kink [Not Recovered/Not Resolved]
  - Fall [Recovered/Resolved]
  - Device occlusion [Not Recovered/Not Resolved]

NARRATIVE: CASE EVENT DATE: 20190101
